FAERS Safety Report 16015652 (Version 2)
Quarter: 2020Q4

REPORT INFORMATION
  Report Type: Spontaneous
  Country: US (occurrence: US)
  Receive Date: 20190228
  Receipt Date: 20201017
  Transmission Date: 20210113
  Serious: No
  Sender: FDA-Public Use
  Company Number: US-009507513-1902USA009491

PATIENT
  Sex: Female
  Weight: 56.7 kg

DRUGS (1)
  1. MIRTAZAPINE. [Suspect]
     Active Substance: MIRTAZAPINE
     Indication: PRURITUS
     Dosage: 30 MILLIGRAM IN THE MORNING AND NIGHT
     Route: 048
     Dates: end: 20171010

REACTIONS (2)
  - Product use in unapproved indication [Unknown]
  - Overdose [Unknown]
